FAERS Safety Report 4864543-9 (Version None)
Quarter: 2005Q4

REPORT INFORMATION
  Report Type: 
  Country: None (occurrence: None)
  Receive Date: 20051222
  Receipt Date: 20051212
  Transmission Date: 20060501
  Serious: Yes (Hospitalization)
  Sender: FDA-Public Use
  Company Number: SE-JNJFOC-20051204646

PATIENT
  Age: 46 Year
  Sex: Female

DRUGS (5)
  1. ACETAMINOPHEN [Suspect]
  2. ACETAMINOPHEN [Suspect]
     Indication: PAIN
  3. DEXTROPROPOXIPHEN [Suspect]
  4. DEXTROPROPOXIPHEN [Suspect]
     Indication: PAIN
  5. WINE [Suspect]
     Indication: DRUG USE FOR UNKNOWN INDICATION
     Dosage: 2-3 BOTTLES OF RED WINE WEEKLY AND HARD LIQUOR

REACTIONS (1)
  - HEPATIC NECROSIS [None]
